FAERS Safety Report 11806029 (Version 1)
Quarter: 2015Q4

REPORT INFORMATION
  Report Type: Spontaneous
  Country: US (occurrence: None)
  Receive Date: 20151204
  Receipt Date: 20151204
  Transmission Date: 20160305
  Serious: Yes (Other)
  Sender: FDA-Public Use
  Company Number: None

PATIENT
  Age: 42 Year
  Sex: Female
  Weight: 99.79 kg

DRUGS (5)
  1. IBUPROFEN. [Concomitant]
     Active Substance: IBUPROFEN
  2. ZOLOFT [Suspect]
     Active Substance: SERTRALINE HYDROCHLORIDE
     Indication: DEPRESSION
     Route: 048
     Dates: start: 20151124, end: 20151201
  3. ALBUTERAL [Concomitant]
     Active Substance: ALBUTEROL
  4. PROZAC [Concomitant]
     Active Substance: FLUOXETINE HYDROCHLORIDE
  5. ZOLOFT [Suspect]
     Active Substance: SERTRALINE HYDROCHLORIDE
     Indication: ANXIETY
     Route: 048
     Dates: start: 20151124, end: 20151201

REACTIONS (7)
  - Thinking abnormal [None]
  - Heart rate increased [None]
  - Dyskinesia [None]
  - Agitation [None]
  - Feeling abnormal [None]
  - Headache [None]
  - Logorrhoea [None]

NARRATIVE: CASE EVENT DATE: 20151202
